FAERS Safety Report 11685397 (Version 1)
Quarter: 2015Q4

REPORT INFORMATION
  Report Type: Spontaneous
  Country: None (occurrence: None)
  Receive Date: 20151029
  Receipt Date: 20151029
  Transmission Date: 20160304
  Serious: Yes (Hospitalization)
  Sender: FDA-Public Use
  Company Number: None

PATIENT
  Age: 38 Year
  Sex: Female
  Weight: 49.9 kg

DRUGS (3)
  1. EFFEXOR [Suspect]
     Active Substance: VENLAFAXINE HYDROCHLORIDE
     Indication: PANIC ATTACK
     Dosage: TAKEN BY MOUTH
     Dates: start: 20150129, end: 20150131
  2. XANAX XR [Concomitant]
     Active Substance: ALPRAZOLAM
  3. ZOLOFT [Suspect]
     Active Substance: SERTRALINE HYDROCHLORIDE
     Indication: PANIC ATTACK
     Dosage: TAKEN BY MOUTH (PILL)
     Dates: start: 20141223, end: 20150101

REACTIONS (20)
  - Condition aggravated [None]
  - Vomiting [None]
  - Akathisia [None]
  - Impaired self-care [None]
  - Feeling abnormal [None]
  - Drug withdrawal syndrome [None]
  - Dyskinesia [None]
  - Psychotic disorder [None]
  - Anxiety [None]
  - Mental disorder [None]
  - Depression [None]
  - Head discomfort [None]
  - Paraesthesia [None]
  - Hyperhidrosis [None]
  - Dizziness [None]
  - Anger [None]
  - Heart rate increased [None]
  - Panic attack [None]
  - Fear [None]
  - Cognitive disorder [None]

NARRATIVE: CASE EVENT DATE: 20141223
